FAERS Safety Report 20727871 (Version 1)
Quarter: 2022Q2

REPORT INFORMATION
  Report Type: Spontaneous
  Country: JP (occurrence: JP)
  Receive Date: 20220419
  Receipt Date: 20220419
  Transmission Date: 20220721
  Serious: Yes (Hospitalization, Other)
  Sender: FDA-Public Use
  Company Number: JP-NOVARTISPH-NVSJ2022JP006167

PATIENT
  Sex: Male

DRUGS (2)
  1. GLYCOPYRROLATE\INDACATEROL\MOMETASONE FUROATE [Suspect]
     Active Substance: GLYCOPYRROLATE\INDACATEROL\MOMETASONE FUROATE
     Indication: Asthma
     Dosage: 1DF: INDACATEROL ACETATE150UG,GLYCOPYRRONIUM BROMIDE50UG,MOMETASONE FUROATE160UG
     Route: 055
  2. GLYCOPYRRONIUM\INDACATEROL [Suspect]
     Active Substance: GLYCOPYRRONIUM\INDACATEROL
     Indication: Product used for unknown indication
     Dosage: UNK
     Route: 055

REACTIONS (6)
  - Cardiac failure [Recovering/Resolving]
  - Altered state of consciousness [Unknown]
  - Cough [Unknown]
  - Hypotension [Unknown]
  - Fall [Unknown]
  - Dysuria [Recovering/Resolving]
